FAERS Safety Report 7214665-2 (Version None)
Quarter: 2011Q1

REPORT INFORMATION
  Report Type: 
  Country: None (occurrence: None)
  Receive Date: 20110105
  Receipt Date: 20110105
  Transmission Date: 20110831
  Serious: No
  Sender: FDA-Public Use
  Company Number: None

PATIENT
  Age: 22 Year
  Sex: Female

DRUGS (1)
  1. AZITHROMYCIN [Suspect]
     Dates: start: 20090409, end: 20090413

REACTIONS (6)
  - INTERNATIONAL NORMALISED RATIO INCREASED [None]
  - LIVER INJURY [None]
  - SINUSITIS [None]
  - HEPATITIS [None]
  - OVERDOSE [None]
  - ISCHAEMIA [None]
